FAERS Safety Report 9155332 (Version 1)
Quarter: 2013Q1

REPORT INFORMATION
  Report Type: Spontaneous
  Country: DE (occurrence: DE)
  Receive Date: 20130311
  Receipt Date: 20130311
  Transmission Date: 20140127
  Serious: Yes (Other)
  Sender: FDA-Public Use
  Company Number: DE-TEVA-389013GER

PATIENT
  Sex: Female
  Weight: 95 kg

DRUGS (3)
  1. CARVEDILOL [Suspect]
     Indication: HYPERTENSION
     Route: 048
  2. L-THYROXIN [Concomitant]
     Dosage: LONG TERM TREATMENT
     Route: 065
  3. TARKA 180 MG /2 MG [Concomitant]
     Dosage: LONG TERM TREATMENT
     Route: 065

REACTIONS (6)
  - Tachycardia [Recovered/Resolved]
  - Blood pressure increased [Recovered/Resolved]
  - Restlessness [Recovered/Resolved]
  - Nervousness [Recovered/Resolved]
  - Parasomnia [Recovered/Resolved]
  - Palpitations [Recovered/Resolved]
